FAERS Safety Report 4490475-4 (Version None)
Quarter: 2004Q4

REPORT INFORMATION
  Report Type: 
  Country: None (occurrence: None)
  Receive Date: 20041102
  Receipt Date: 20040817
  Transmission Date: 20050328
  Serious: Yes (Hospitalization)
  Sender: FDA-Public Use
  Company Number: GB-BRISTOL-MYERS SQUIBB COMPANY-12676730

PATIENT
  Age: 74 Year
  Sex: Female
  Weight: 45 kg

DRUGS (11)
  1. ABILIFY [Suspect]
     Indication: SCHIZOPHRENIFORM DISORDER
     Route: 048
     Dates: start: 20040712, end: 20040804
  2. ABILIFY [Suspect]
     Indication: PSYCHOTIC DISORDER
     Route: 048
     Dates: start: 20040712, end: 20040804
  3. ATORVASTATIN CALCIUM [Concomitant]
     Indication: LIPIDS INCREASED
     Route: 048
     Dates: start: 20040101
  4. NICORANDIL [Concomitant]
     Indication: MYOCARDIAL ISCHAEMIA
     Route: 048
     Dates: start: 20040101
  5. CO-AMILOFRUSE [Concomitant]
     Indication: CARDIAC FAILURE CONGESTIVE
     Dosage: 2.5/20 MG
     Route: 048
     Dates: start: 20040101
  6. LORAZEPAM [Concomitant]
     Indication: AGITATION
     Route: 048
     Dates: start: 20040101
  7. SERTRALINE HCL [Concomitant]
     Indication: DEPRESSION
     Route: 048
     Dates: start: 20040101
  8. VALPROATE SODIUM [Concomitant]
     Indication: PSYCHOTIC DISORDER
     Route: 048
     Dates: start: 20040101
  9. CELECOXIB [Concomitant]
     Indication: OSTEOARTHRITIS
     Route: 048
     Dates: start: 20040101
  10. THYROXINE [Concomitant]
     Indication: HYPOTHYROIDISM
     Route: 048
  11. LANSOPRAZOLE [Concomitant]
     Indication: GASTROOESOPHAGEAL REFLUX DISEASE
     Route: 048
     Dates: start: 20040101

REACTIONS (4)
  - AGITATION [None]
  - ESCHERICHIA URINARY TRACT INFECTION [None]
  - NEUROLEPTIC MALIGNANT SYNDROME [None]
  - URINARY TRACT INFECTION [None]
